FAERS Safety Report 10063423 (Version 2)
Quarter: 2014Q2

REPORT INFORMATION
  Report Type: Spontaneous
  Country: US (occurrence: US)
  Receive Date: 20140407
  Receipt Date: 20140513
  Transmission Date: 20141212
  Serious: No
  Sender: FDA-Public Use
  Company Number: US-PFIZER INC-2014097005

PATIENT
  Age: 42 Year
  Sex: Female
  Weight: 62 kg

DRUGS (8)
  1. ZOLOFT [Suspect]
     Indication: OBSESSIVE-COMPULSIVE DISORDER
     Dosage: 25 MG, 1X/DAY
     Route: 048
     Dates: end: 20140402
  2. ZOLOFT [Suspect]
     Indication: DEPRESSION
  3. ZOLOFT [Suspect]
     Indication: PANIC DISORDER
  4. ZOLOFT [Suspect]
     Indication: ANXIETY
  5. SERTRALINE HCL [Suspect]
     Indication: OBSESSIVE-COMPULSIVE DISORDER
     Dosage: 12.5 MG (BY CUTTING 25MG INTO HALF), 1X/DAY
     Route: 048
     Dates: start: 20140304
  6. SERTRALINE HCL [Suspect]
     Indication: DEPRESSION
  7. SERTRALINE HCL [Suspect]
     Indication: PANIC DISORDER
  8. SERTRALINE HCL [Suspect]
     Indication: ANXIETY

REACTIONS (3)
  - Malaise [Not Recovered/Not Resolved]
  - Anxiety [Not Recovered/Not Resolved]
  - Drug intolerance [Unknown]
